FAERS Safety Report 22048114 (Version 2)
Quarter: 2023Q1

REPORT INFORMATION
  Report Type: Spontaneous
  Country: US (occurrence: None)
  Receive Date: 20230301
  Receipt Date: 20230306
  Transmission Date: 20230417
  Serious: Yes (Other)
  Sender: FDA-Public Use
  Company Number: US-ROCHE-3296224

PATIENT
  Age: 24 Year
  Sex: Male
  Weight: 63.560 kg

DRUGS (18)
  1. CELLCEPT [Suspect]
     Active Substance: MYCOPHENOLATE MOFETIL
     Indication: Product used for unknown indication
     Route: 065
  2. CLOBAZAM [Suspect]
     Active Substance: CLOBAZAM
     Indication: Seizure
     Route: 048
     Dates: start: 201909
  3. CLOBAZAM [Suspect]
     Active Substance: CLOBAZAM
     Indication: Epilepsy
     Route: 048
     Dates: start: 20230114
  4. CLOBAZAM [Suspect]
     Active Substance: CLOBAZAM
     Route: 048
  5. CLOBAZAM [Suspect]
     Active Substance: CLOBAZAM
     Route: 048
     Dates: end: 20230111
  6. CLOBAZAM [Suspect]
     Active Substance: CLOBAZAM
     Route: 048
     Dates: start: 20230114, end: 20230114
  7. CLOBAZAM [Suspect]
     Active Substance: CLOBAZAM
     Route: 048
     Dates: start: 20230115, end: 20230115
  8. CLOBAZAM [Suspect]
     Active Substance: CLOBAZAM
     Route: 048
     Dates: start: 20230116, end: 2023
  9. CLOBAZAM [Suspect]
     Active Substance: CLOBAZAM
     Route: 048
     Dates: start: 20230116, end: 2023
  10. CLOBAZAM [Suspect]
     Active Substance: CLOBAZAM
     Route: 048
     Dates: start: 2023, end: 20230204
  11. PREDNISONE [Suspect]
     Active Substance: PREDNISONE
     Indication: Product used for unknown indication
     Route: 065
  12. GABAPENTIN [Concomitant]
     Active Substance: GABAPENTIN
  13. VIMPAT [Concomitant]
     Active Substance: LACOSAMIDE
  14. FLUOXETINE [Concomitant]
     Active Substance: FLUOXETINE HYDROCHLORIDE
  15. ASPIRIN [Concomitant]
     Active Substance: ASPIRIN
  16. METOPROLOL [Concomitant]
     Active Substance: METOPROLOL
  17. FAMOTIDINE [Concomitant]
     Active Substance: FAMOTIDINE
  18. ATIVAN [Concomitant]
     Active Substance: LORAZEPAM

REACTIONS (6)
  - Suicidal ideation [Recovering/Resolving]
  - Fall [Unknown]
  - Agitation [Not Recovered/Not Resolved]
  - Aggression [Not Recovered/Not Resolved]
  - Anxiety [Not Recovered/Not Resolved]
  - Drug interaction [Unknown]

NARRATIVE: CASE EVENT DATE: 20230101
